FAERS Safety Report 9204633 (Version 1)
Quarter: 2013Q1

REPORT INFORMATION
  Report Type: Spontaneous
  Country: US (occurrence: None)
  Receive Date: 20120709
  Receipt Date: 20120709
  Transmission Date: 20140127
  Serious: Yes (Other)
  Sender: FDA-Public Use
  Company Number: PHEH2011US010063

PATIENT
  Age: 74 Year
  Sex: Female

DRUGS (2)
  1. GLEEVEC (IMATINIB) UNKNOWN [Suspect]
     Indication: ACUTE LYMPHOCYTIC LEUKAEMIA
     Route: 048
     Dates: start: 20110702
  2. CHEMOTHERAPEUTICS  (NO INGREDIENTS / SUBSTANCES) [Concomitant]

REACTIONS (5)
  - Herpes zoster [None]
  - Asthenia [None]
  - White blood cell count decreased [None]
  - Nausea [None]
  - Neuralgia [None]
